FAERS Safety Report 15634198 (Version 1)
Quarter: 2018Q4

REPORT INFORMATION
  Report Type: Spontaneous
  Country: US (occurrence: US)
  Receive Date: 20181119
  Receipt Date: 20181119
  Transmission Date: 20190205
  Serious: No
  Sender: FDA-Public Use
  Company Number: US-PFIZER INC-2017275667

PATIENT
  Age: 4 Year
  Sex: Female

DRUGS (3)
  1. GENOTROPIN MQ [Suspect]
     Active Substance: SOMATROPIN
     Dosage: UNK
     Dates: end: 201704
  2. GENOTROPIN MQ [Suspect]
     Active Substance: SOMATROPIN
     Dosage: 0.6 MG, DAILY
     Route: 058
  3. GENOTROPIN MQ [Suspect]
     Active Substance: SOMATROPIN
     Indication: BLOOD GROWTH HORMONE ABNORMAL
     Dosage: 0.6 MG, DAILY
     Dates: start: 20141212

REACTIONS (2)
  - Thyroxine free decreased [Unknown]
  - Alanine aminotransferase increased [Unknown]

NARRATIVE: CASE EVENT DATE: 20180723
